FAERS Safety Report 7493180-5 (Version None)
Quarter: 2011Q2

REPORT INFORMATION
  Report Type: 
  Country: None (occurrence: None)
  Receive Date: 20110520
  Receipt Date: 20110516
  Transmission Date: 20111010
  Serious: Yes (Other)
  Sender: FDA-Public Use
  Company Number: US-PFIZER INC-2009307385

PATIENT
  Sex: Male

DRUGS (1)
  1. SUTENT [Suspect]
     Indication: METASTATIC RENAL CELL CARCINOMA
     Dosage: 37.5 MG  (12.5 MG+25 MG), 1X/DAY FOR 28 DAYS Q 42 DAYS
     Route: 048
     Dates: start: 20091117

REACTIONS (3)
  - SKIN EXFOLIATION [None]
  - BLOOD PRESSURE INCREASED [None]
  - HEART RATE INCREASED [None]
